FAERS Safety Report 18571945 (Version 10)
Quarter: 2021Q1

REPORT INFORMATION
  Report Type: Report from Study
  Country: AU (occurrence: AU)
  Receive Date: 20201202
  Receipt Date: 20210201
  Transmission Date: 20210419
  Serious: Yes (Other)
  Sender: FDA-Public Use
  Company Number: AU-EISAI MEDICAL RESEARCH-EC-2020-084676

PATIENT
  Age: 78 Year
  Sex: Male
  Weight: 84.5 kg

DRUGS (15)
  1. PEMBROLIZUMAB. [Suspect]
     Active Substance: PEMBROLIZUMAB
     Route: 041
     Dates: start: 20201104, end: 20201125
  2. KEFLEX [Concomitant]
     Active Substance: CEPHALEXIN
     Dates: start: 20201007, end: 20201126
  3. LENVATINIB [Suspect]
     Active Substance: LENVATINIB
     Indication: MALIGNANT MELANOMA STAGE IV
     Route: 048
     Dates: start: 20200429
  4. PEMBROLIZUMAB. [Suspect]
     Active Substance: PEMBROLIZUMAB
     Indication: MALIGNANT MELANOMA STAGE III
     Route: 041
     Dates: start: 20201014, end: 20201014
  5. OLMETEC [Concomitant]
     Active Substance: OLMESARTAN MEDOXOMIL
     Dates: start: 201401
  6. MAGNESIUM [Concomitant]
     Active Substance: MAGNESIUM
     Dates: start: 20200702
  7. PEMBROLIZUMAB. [Suspect]
     Active Substance: PEMBROLIZUMAB
     Indication: MALIGNANT MELANOMA STAGE IV
     Route: 041
     Dates: start: 20200429, end: 20200923
  8. COLOXYL [Concomitant]
     Dates: start: 201910, end: 20201126
  9. LEVOTHYROXINE SODIUM. [Concomitant]
     Active Substance: LEVOTHYROXINE SODIUM
     Dates: start: 20201015, end: 20201104
  10. SERETIDE [Concomitant]
     Active Substance: FLUTICASONE PROPIONATE\SALMETEROL XINAFOATE
     Dates: start: 201801
  11. PEMBROLIZUMAB. [Suspect]
     Active Substance: PEMBROLIZUMAB
     Route: 041
     Dates: start: 20201216
  12. DIAFORMIN [Concomitant]
     Active Substance: METFORMIN HYDROCHLORIDE
     Dates: start: 201501
  13. ACETAMINOPHEN. [Concomitant]
     Active Substance: ACETAMINOPHEN
     Dates: start: 201910
  14. LENVATINIB [Suspect]
     Active Substance: LENVATINIB
     Indication: MALIGNANT MELANOMA STAGE III
  15. ENDONE [Concomitant]
     Active Substance: OXYCODONE HYDROCHLORIDE
     Dates: start: 201910, end: 20201126

REACTIONS (2)
  - Hypercholesterolaemia [Recovered/Resolved]
  - Hypertriglyceridaemia [Recovered/Resolved]

NARRATIVE: CASE EVENT DATE: 20201023
